FAERS Safety Report 6700815-0 (Version None)
Quarter: 2010Q2

REPORT INFORMATION
  Report Type: 
  Country: None (occurrence: None)
  Receive Date: 20100428
  Receipt Date: 20100416
  Transmission Date: 20101027
  Serious: Yes (Other)
  Sender: FDA-Public Use
  Company Number: US-WYE-H14671710

PATIENT
  Sex: Female
  Weight: 48.12 kg

DRUGS (2)
  1. EFFEXOR [Suspect]
     Indication: DEPRESSION
     Route: 048
     Dates: start: 19900101
  2. AMBIEN [Concomitant]

REACTIONS (2)
  - CATARACT [None]
  - MACULAR DEGENERATION [None]
